FAERS Safety Report 7652489-2 (Version None)
Quarter: 2011Q3

REPORT INFORMATION
  Report Type: 
  Country: None (occurrence: None)
  Receive Date: 20110803
  Receipt Date: 20110722
  Transmission Date: 20111222
  Serious: Yes (Other)
  Sender: FDA-Public Use
  Company Number: US-AMGEN-USASP2011037468

PATIENT
  Sex: Male

DRUGS (8)
  1. LIDEX [Concomitant]
  2. NEXIUM [Concomitant]
  3. FLEXERIL [Concomitant]
  4. LUBRIDERM                          /01007601/ [Concomitant]
  5. COUMADIN [Concomitant]
  6. PHENERGAN                          /00033001/ [Concomitant]
  7. ULTRAM [Concomitant]
  8. ENBREL [Suspect]
     Dosage: 50 MG, QWK
     Dates: start: 20090101

REACTIONS (3)
  - PSORIASIS [None]
  - PLATELET COUNT DECREASED [None]
  - LOWER GASTROINTESTINAL HAEMORRHAGE [None]
